FAERS Safety Report 23709147 (Version 1)
Quarter: 2024Q2

REPORT INFORMATION
  Report Type: Spontaneous
  Country: TH (occurrence: TH)
  Receive Date: 20240404
  Receipt Date: 20240404
  Transmission Date: 20240715
  Serious: Yes (Hospitalization, Other)
  Sender: FDA-Public Use
  Company Number: TH-FreseniusKabi-FK202405526

PATIENT
  Age: 57 Year
  Sex: Female

DRUGS (8)
  1. PACLITAXEL [Suspect]
     Active Substance: PACLITAXEL
     Indication: Breast cancer stage II
     Dosage: FORM: INFUSION?WEEKLY PACLITAXEL AT 80 MG/M2 OVER 1 HOUR WAS PLANNED FOR 12 CYCLES
  2. DOXORUBICIN [Concomitant]
     Active Substance: DOXORUBICIN
     Indication: Breast cancer stage II
     Dosage: AT 3-WEEK INTERVALS
  3. CYCLOPHOSPHAMIDE [Concomitant]
     Active Substance: CYCLOPHOSPHAMIDE
     Indication: Breast cancer stage II
     Dosage: AT 3-WEEK INTERVALS
  4. DEXAMETHASONE [Concomitant]
     Active Substance: DEXAMETHASONE
     Indication: Breast cancer stage II
     Dosage: 8 MG PER DAY POST-INFUSION?DEXAMETHASONE WAS CONTINUED FOR 30 DAYS, AFTER WHICH DEXAMETHASONE WAS CH
  5. DEXAMETHASONE [Concomitant]
     Active Substance: DEXAMETHASONE
     Dosage: ROA: INTRAVENOUS ??DEXAMETHASONE AT A DOSAGE OF 10 MG EVERY 12 HOURS WAS INITIATED
  6. DEXAMETHASONE [Concomitant]
     Active Substance: DEXAMETHASONE
     Dosage: ROA: INTRAVENOUS ??8 MG EVERY 12 HOURS ON THE 10TH DAY OF ADMISSION
  7. METHYLPREDNISOLONE [Concomitant]
     Active Substance: METHYLPREDNISOLONE
     Indication: Product used for unknown indication
     Dosage: ROUTE: INTRAVENOUS?500 MG WAS ADMINISTERED FOR 3 DAYS
  8. PREDNISOLONE [Concomitant]
     Active Substance: PREDNISOLONE
     Indication: Product used for unknown indication
     Dosage: PREDNISOLONE WAS GRADUALLY TAPERED AND EVENTUALLY DISCONTINUED 3 MONTHS AFTER DISCHARGE

REACTIONS (3)
  - Organising pneumonia [Recovered/Resolved]
  - Acute respiratory distress syndrome [Recovered/Resolved]
  - Neuropathy peripheral [Unknown]
